FAERS Safety Report 5566195-1 (Version None)
Quarter: 2007Q4

REPORT INFORMATION
  Report Type: 
  Country: None (occurrence: None)
  Receive Date: 20071219
  Receipt Date: 20070913
  Transmission Date: 20080405
  Serious: No
  Sender: FDA-Public Use
  Company Number: US-KINGPHARMUSA00001-K200701193

PATIENT

DRUGS (1)
  1. APLISOL [Suspect]
     Dosage: .05 MG, SINGLE
     Route: 058
     Dates: start: 20070913, end: 20070913

REACTIONS (2)
  - NO ADVERSE DRUG REACTION [None]
  - WRONG DRUG ADMINISTERED [None]
